FAERS Safety Report 20956711 (Version 2)
Quarter: 2022Q4

REPORT INFORMATION
  Report Type: Spontaneous
  Country: FR (occurrence: FR)
  Receive Date: 20220614
  Receipt Date: 20221206
  Transmission Date: 20230112
  Serious: Yes (Other)
  Sender: FDA-Public Use
  Company Number: FR-002147023-NVSC2022FR122869

PATIENT

DRUGS (1)
  1. INFLIXIMAB [Suspect]
     Active Substance: INFLIXIMAB
     Dosage: 5 MG/KG (0, 2, 6, AND EVERY 4 TO 6 WEEKS)
     Route: 042

REACTIONS (2)
  - Fungal oesophagitis [Unknown]
  - Product use in unapproved indication [Unknown]
